FAERS Safety Report 5315440-6 (Version None)
Quarter: 2007Q2

REPORT INFORMATION
  Report Type: 
  Country: None (occurrence: None)
  Receive Date: 20070503
  Receipt Date: 20070424
  Transmission Date: 20071010
  Serious: Yes (Death)
  Sender: FDA-Public Use
  Company Number: CN-JNJFOC-20070405132

PATIENT
  Age: 15 Month
  Sex: Female
  Weight: 8 kg

DRUGS (7)
  1. TYLENOL (CAPLET) [Suspect]
  2. TYLENOL (CAPLET) [Suspect]
     Indication: PYREXIA
  3. BA YI AO [Concomitant]
     Indication: INFECTION
  4. TAN RE QING [Concomitant]
     Indication: INFECTION
  5. ASPIRIN [Concomitant]
     Indication: PYREXIA
     Route: 030
  6. VITAMIN B [Concomitant]
     Indication: DRUG USE FOR UNKNOWN INDICATION
  7. ASCORBIC ACID [Concomitant]
     Indication: DRUG USE FOR UNKNOWN INDICATION

REACTIONS (3)
  - CYANOSIS [None]
  - LEFT VENTRICULAR FAILURE [None]
  - VOMITING [None]
